FAERS Safety Report 22641715 (Version 5)
Quarter: 2024Q1

REPORT INFORMATION
  Report Type: Report from Study
  Country: US (occurrence: US)
  Receive Date: 20230626
  Receipt Date: 20240119
  Transmission Date: 20240410
  Serious: Yes (Congenital Anomaly)
  Sender: FDA-Public Use
  Company Number: US-PFIZER INC-PV202300109666

PATIENT
  Age: 3 Month
  Sex: Male

DRUGS (10)
  1. XELJANZ [Suspect]
     Active Substance: TOFACITINIB CITRATE
     Indication: Colitis ulcerative
     Dosage: UNK
     Route: 064
     Dates: start: 20200701, end: 20200731
  2. XELJANZ [Suspect]
     Active Substance: TOFACITINIB CITRATE
     Dosage: 10 MG, 2X/DAY
     Route: 064
     Dates: start: 20210801, end: 20220518
  3. HUMIRA [Concomitant]
     Active Substance: ADALIMUMAB
     Indication: Colitis ulcerative
     Dosage: UNK
     Route: 064
     Dates: start: 20190701, end: 20190701
  4. LACTASE [Concomitant]
     Active Substance: LACTASE
     Indication: Lactose intolerance
     Dosage: 1 PILL, 3X/DAY
     Route: 064
     Dates: start: 20210827, end: 20220518
  5. REMICADE [Concomitant]
     Active Substance: INFLIXIMAB
     Indication: Colitis ulcerative
     Dosage: UNK
     Route: 064
     Dates: start: 20180701, end: 20190701
  6. SERTRALINE HYDROCHLORIDE [Concomitant]
     Active Substance: SERTRALINE HYDROCHLORIDE
     Indication: Depression
     Dosage: 50 MG, 1X/DAY
     Route: 064
     Dates: start: 20210827, end: 20220518
  7. TUMS [Concomitant]
     Active Substance: CALCIUM CARBONATE
     Indication: Dyspepsia
     Dosage: 2 PILL, 1X/DAY
     Route: 064
     Dates: start: 20220131, end: 20220411
  8. MODERNA COVID-19 VACCINE [Concomitant]
     Active Substance: ELASOMERAN
     Dosage: DOSE 3, SINGLE (1 SHOT)
     Route: 064
     Dates: start: 20220101, end: 20220101
  9. MINERALS\VITAMINS [Concomitant]
     Active Substance: MINERALS\VITAMINS
     Dosage: 1 PILL, 1X/DAY
     Route: 064
     Dates: start: 20210915, end: 20220518
  10. TETANUS TOXOID, REDUCED DIPHTHERIA TOXOID AND ACELLULAR PERTUSSIS VACC [Concomitant]
     Active Substance: TETANUS TOXOID, REDUCED DIPHTHERIA TOXOID AND ACELLULAR PERTUSSIS VACCINE ADSORBED, TDAP
     Dosage: 1 SHOT BOOSTER, SINGLE, VACCINE (ADULT)
     Route: 064
     Dates: start: 20220311, end: 20220311

REACTIONS (4)
  - Maternal exposure during pregnancy [Unknown]
  - Univentricular heart [Unknown]
  - Cardiac murmur [Unknown]
  - Mitral valve prolapse [Unknown]
